FAERS Safety Report 8358603-8 (Version None)
Quarter: 2012Q2

REPORT INFORMATION
  Report Type: 
  Country: None (occurrence: None)
  Receive Date: 20120514
  Receipt Date: 20120511
  Transmission Date: 20120825
  Serious: Yes (Hospitalization)
  Sender: FDA-Public Use
  Company Number: US-BAYER-2012-046806

PATIENT
  Age: 49 Year
  Sex: Female

DRUGS (2)
  1. DROSPIRENONE AND ETHINYL ESTRADIOL [Suspect]
     Dosage: UNK
     Dates: start: 20050501, end: 20090601
  2. YASMIN [Suspect]
     Dosage: UNK
     Dates: start: 20050501, end: 20090601

REACTIONS (1)
  - DEEP VEIN THROMBOSIS [None]
